FAERS Safety Report 23377631 (Version 1)
Quarter: 2024Q1

REPORT INFORMATION
  Report Type: Spontaneous
  Country: ES (occurrence: ES)
  Receive Date: 20240108
  Receipt Date: 20240108
  Transmission Date: 20240409
  Serious: Yes (Other)
  Sender: FDA-Public Use
  Company Number: None

PATIENT
  Age: 29 Year
  Sex: Female
  Weight: 90 kg

DRUGS (3)
  1. LEVOSULPIRIDE [Suspect]
     Active Substance: LEVOSULPIRIDE
     Indication: Abdominal pain
     Dosage: 50MG 2 VECES AL D?A (UNA PASTILLA EN LA COMIDA Y OTRA EN LA CENA)
     Route: 048
     Dates: start: 20231103
  2. DROSPIRENONE [Suspect]
     Active Substance: DROSPIRENONE
     Indication: Menstruation irregular
     Dosage: 4MG UNA VEZ AL D?A (24 D?AS + 4 DE DESCANSO)
     Route: 048
     Dates: start: 20211103
  3. FAMOTIDINA CINFA [Concomitant]
     Indication: Dyspepsia
     Dosage: 20MG UNA VEZ AL D?A (DESAYUNO)
     Route: 048
     Dates: start: 20231103

REACTIONS (1)
  - Galactorrhoea [Not Recovered/Not Resolved]

NARRATIVE: CASE EVENT DATE: 20231214
